FAERS Safety Report 8436676-1 (Version None)
Quarter: 2012Q2

REPORT INFORMATION
  Report Type: 
  Country: None (occurrence: None)
  Receive Date: 20120614
  Receipt Date: 20120612
  Transmission Date: 20120825
  Serious: No
  Sender: FDA-Public Use
  Company Number: US-PFIZER INC-2012141821

PATIENT
  Sex: Male
  Weight: 86.168 kg

DRUGS (9)
  1. LIPITOR [Suspect]
     Indication: BLOOD CHOLESTEROL INCREASED
     Dosage: 80 MG, 1X/DAY
     Route: 048
  2. FENTANYL [Concomitant]
     Dosage: UNK
  3. OXYCODONE [Concomitant]
     Dosage: 15 MG, AS NEEDED
  4. METHADONE [Concomitant]
     Dosage: 10 MG, 2X/DAY
  5. SERTRALINE [Concomitant]
     Indication: DEPRESSION
     Dosage: 200 MG, 1X/DAY
  6. MS CONTIN [Concomitant]
     Dosage: 100 MG, 3X/DAY
  7. LYRICA [Suspect]
     Indication: PAIN
     Dosage: 100 MG, 3X/DAY
     Route: 048
     Dates: start: 20100101, end: 20100101
  8. VALIUM [Concomitant]
     Dosage: 10 MG, AS NEEDED
  9. TRAZODONE [Concomitant]
     Dosage: 100 MG, 1X/DAY

REACTIONS (1)
  - PAIN [None]
